FAERS Safety Report 23444468 (Version 1)
Quarter: 2024Q1

REPORT INFORMATION
  Report Type: Spontaneous
  Country: US (occurrence: None)
  Receive Date: 20240125
  Receipt Date: 20240125
  Transmission Date: 20240409
  Serious: No
  Sender: FDA-Public Use
  Company Number: None

PATIENT
  Age: 54 Year
  Sex: Female
  Weight: 72 kg

DRUGS (4)
  1. ATOMOXETINE [Suspect]
     Active Substance: ATOMOXETINE
     Indication: Attention deficit hyperactivity disorder
     Dosage: 1 CAPSULE AT BEDTIME ORAL
     Route: 048
     Dates: start: 20240125
  2. VALSARTAN [Concomitant]
     Active Substance: VALSARTAN
  3. atorvastaten [Concomitant]
  4. busperone [Concomitant]

REACTIONS (3)
  - Vertigo [None]
  - Feeling abnormal [None]
  - Illogical thinking [None]

NARRATIVE: CASE EVENT DATE: 20240125
